FAERS Safety Report 8335090-7 (Version None)
Quarter: 2012Q2

REPORT INFORMATION
  Report Type: 
  Country: None (occurrence: None)
  Receive Date: 20120503
  Receipt Date: 20100504
  Transmission Date: 20120825
  Serious: No
  Sender: FDA-Public Use
  Company Number: US-TEVA-2010002542

PATIENT
  Sex: Female

DRUGS (2)
  1. PROVIGIL [Suspect]
     Indication: FATIGUE
     Route: 048
  2. NUVIGIL [Suspect]
     Indication: FATIGUE
     Route: 048
     Dates: start: 20100401

REACTIONS (1)
  - HEADACHE [None]
